FAERS Safety Report 12508483 (Version 1)
Quarter: 2016Q2

REPORT INFORMATION
  Report Type: Spontaneous
  Country: US (occurrence: US)
  Receive Date: 20160629
  Receipt Date: 20160629
  Transmission Date: 20160815
  Serious: Yes (Hospitalization, Other)
  Sender: FDA-Public Use
  Company Number: US-PFIZER INC-2016314285

PATIENT
  Age: 33 Year
  Sex: Female
  Weight: 86.64 kg

DRUGS (2)
  1. CHANTIX [Suspect]
     Active Substance: VARENICLINE TARTRATE
     Indication: SMOKING CESSATION THERAPY
     Dosage: UNK
     Dates: start: 20070409, end: 2007
  2. SYNTHROID [Concomitant]
     Active Substance: LEVOTHYROXINE SODIUM
     Indication: HYPOTHYROIDISM
     Dosage: 100 UG, 1X/DAY
     Route: 048
     Dates: start: 2001

REACTIONS (12)
  - Type 2 diabetes mellitus [Unknown]
  - Homicidal ideation [Recovered/Resolved]
  - Suicidal ideation [Recovered/Resolved]
  - Glucose tolerance impaired [Unknown]
  - Hallucination [Recovered/Resolved]
  - Daydreaming [Recovered/Resolved]
  - Panic disorder [Recovering/Resolving]
  - Blood glucose increased [Unknown]
  - Drug dispensing error [Unknown]
  - Anxiety [Recovering/Resolving]
  - Obsessive thoughts [Recovered/Resolved]
  - Nightmare [Recovered/Resolved]

NARRATIVE: CASE EVENT DATE: 2007
